FAERS Safety Report 6222645-9 (Version None)
Quarter: 2009Q2

REPORT INFORMATION
  Report Type: 
  Country: None (occurrence: None)
  Receive Date: 20090609
  Receipt Date: 20090527
  Transmission Date: 20091009
  Serious: Yes (Death)
  Sender: FDA-Public Use
  Company Number: 2009AL002026

PATIENT
  Age: 64 Year
  Sex: Male
  Weight: 81.1939 kg

DRUGS (22)
  1. DIGOXIN [Suspect]
     Indication: ATRIAL FIBRILLATION
     Dosage: 0.125MG, PO
     Route: 048
  2. COUMADIN [Concomitant]
  3. SPIRIVA [Concomitant]
  4. CARDIZEM [Concomitant]
  5. AMIODARONE [Concomitant]
  6. LEVAQUIN [Concomitant]
  7. PREDNISONE [Concomitant]
  8. CRESTOR [Concomitant]
  9. FORADIL [Concomitant]
  10. ALBUTEROL [Concomitant]
  11. FLUROSIMIDE [Concomitant]
  12. VITAMIN E [Concomitant]
  13. OXYCODONE [Concomitant]
  14. ALPRAZOLAM [Concomitant]
  15. VERAPAMIL [Concomitant]
  16. CARVEDILOL [Concomitant]
  17. DOCUSATE SODIUM [Concomitant]
  18. ECK BISACODYL [Concomitant]
  19. PROMITHAZINE [Concomitant]
  20. AZITHROMYCIN [Concomitant]
  21. FORMOTEROL FUMARATE [Concomitant]
  22. FUMARATE [Concomitant]

REACTIONS (10)
  - ANHEDONIA [None]
  - ARRHYTHMIA [None]
  - HYPERTENSIVE HEART DISEASE [None]
  - INJURY [None]
  - MENTAL DISORDER [None]
  - MYOCARDIAL ISCHAEMIA [None]
  - OEDEMA [None]
  - PAIN [None]
  - TACHYCARDIA [None]
  - THERAPEUTIC AGENT TOXICITY [None]
